FAERS Safety Report 6672099-3 (Version None)
Quarter: 2010Q2

REPORT INFORMATION
  Report Type: 
  Country: None (occurrence: None)
  Receive Date: 20100407
  Receipt Date: 20100407
  Transmission Date: 20101027
  Serious: No
  Sender: FDA-Public Use
  Company Number: None

PATIENT
  Sex: Female
  Weight: 77.1115 kg

DRUGS (1)
  1. CYANOCOBALAMIN 1000 MCG AMERICAN REAGENT [Suspect]
     Indication: VITAMIN B12 DEFICIENCY
     Dosage: 1000MCG MONTHLY IM
     Route: 030
     Dates: start: 20100330, end: 20100405

REACTIONS (2)
  - BURNING SENSATION [None]
  - INJECTION SITE PAIN [None]
